FAERS Safety Report 10669628 (Version 3)
Quarter: 2015Q1

REPORT INFORMATION
  Report Type: Report from Study
  Country: FR (occurrence: FR)
  Receive Date: 20141222
  Receipt Date: 20150217
  Transmission Date: 20150720
  Serious: Yes (Death, Hospitalization, Other)
  Sender: FDA-Public Use
  Company Number: FR-ACTELION-A-CH2014-94758

PATIENT
  Age: 73 Year
  Sex: Female
  Weight: 55 kg

DRUGS (14)
  1. ADALAT [Concomitant]
     Active Substance: NIFEDIPINE
  2. DUPHALAC [Concomitant]
     Active Substance: LACTULOSE
  3. TRACLEER [Suspect]
     Active Substance: BOSENTAN\BOSENTAN MONOHYDRATE
     Indication: SCLERODERMA ASSOCIATED DIGITAL ULCER
     Dosage: 125 MG, BID
     Route: 048
     Dates: start: 20081120, end: 201308
  4. VITAMIN D [Concomitant]
     Active Substance: CHOLECALCIFEROL
  5. SANDOSTATIN [Suspect]
     Active Substance: OCTREOTIDE ACETATE
     Indication: DRUG DEPENDENCE
     Route: 065
  6. CORTANCYL [Concomitant]
     Active Substance: PREDNISONE
  7. INEXIUM [Concomitant]
     Active Substance: ESOMEPRAZOLE
  8. TRACLEER [Suspect]
     Active Substance: BOSENTAN\BOSENTAN MONOHYDRATE
     Dosage: 62.5 MG, BID
     Route: 048
     Dates: start: 20091118
  9. CALCIDOSE [Concomitant]
     Active Substance: CALCIUM CARBONATE
  10. COLOPEG [Concomitant]
     Active Substance: POLYETHYLENE GLYCOL 3350\POTASSIUM CHLORIDE\SODIUM BICARBONATE\SODIUM CHLORIDE\SODIUM SULFATE
  11. DAFALGAN [Concomitant]
     Active Substance: ACETAMINOPHEN
  12. TRIMEBUTINE [Concomitant]
     Active Substance: TRIMEBUTINE
  13. CYCLOPHOSPHAMIDE. [Concomitant]
     Active Substance: CYCLOPHOSPHAMIDE
     Indication: SCLERODERMA ASSOCIATED DIGITAL ULCER
  14. DOMPERIDONE [Concomitant]
     Active Substance: DOMPERIDONE

REACTIONS (25)
  - Hypovolaemic shock [Unknown]
  - Ventricular hypertrophy [Unknown]
  - Ischaemia [Unknown]
  - Diarrhoea [Unknown]
  - Cardiac failure [Not Recovered/Not Resolved]
  - Finger amputation [Unknown]
  - Toe amputation [Unknown]
  - Phobia [Unknown]
  - Intestinal obstruction [Fatal]
  - Dry skin [Fatal]
  - Cutaneous calcification [Fatal]
  - Hysterectomy [Unknown]
  - Dry eye [Unknown]
  - Ventricular arrhythmia [Unknown]
  - Breast cyst excision [Unknown]
  - Sense of oppression [Unknown]
  - Bronchiectasis [Unknown]
  - Cataract [Not Recovered/Not Resolved]
  - Anxiety disorder [Unknown]
  - Dyspnoea exertional [Unknown]
  - Sclerodactylia [Fatal]
  - Pyometra [Unknown]
  - Pulmonary fibrosis [Unknown]
  - Concomitant disease progression [Unknown]
  - Scleroderma [Fatal]

NARRATIVE: CASE EVENT DATE: 201210
